FAERS Safety Report 11539416 (Version 1)
Quarter: 2015Q3

REPORT INFORMATION
  Report Type: Spontaneous
  Country: US (occurrence: US)
  Receive Date: 20150923
  Receipt Date: 20150923
  Transmission Date: 20151125
  Serious: No
  Sender: FDA-Public Use
  Company Number: US-TEVA-568854USA

PATIENT
  Age: 48 Year
  Sex: Female
  Weight: 70.37 kg

DRUGS (2)
  1. HYDROXYCHLOROQUINE [Suspect]
     Active Substance: HYDROXYCHLOROQUINE
     Indication: SYSTEMIC LUPUS ERYTHEMATOSUS
     Dosage: 400 MILLIGRAM DAILY;
     Route: 065
     Dates: start: 2014
  2. CELEBREX [Concomitant]
     Active Substance: CELECOXIB

REACTIONS (3)
  - Decreased appetite [Unknown]
  - Alopecia [Unknown]
  - Diarrhoea [Unknown]
